FAERS Safety Report 26174636 (Version 1)
Quarter: 2025Q4

REPORT INFORMATION
  Report Type: Report from Study
  Country: CN (occurrence: CN)
  Receive Date: 20251218
  Receipt Date: 20251218
  Transmission Date: 20260118
  Serious: Yes (Other)
  Sender: ROCHE
  Company Number: CN-ROCHE-10000341718

PATIENT
  Age: 51 Year
  Sex: Female
  Weight: 63.7 kg

DRUGS (46)
  1. POLATUZUMAB VEDOTIN [Suspect]
     Active Substance: POLATUZUMAB VEDOTIN
     Indication: Diffuse large B-cell lymphoma
     Route: 041
     Dates: start: 20240405, end: 20240405
  2. POLATUZUMAB VEDOTIN [Suspect]
     Active Substance: POLATUZUMAB VEDOTIN
     Route: 041
     Dates: start: 20240612, end: 20240612
  3. POLATUZUMAB VEDOTIN [Suspect]
     Active Substance: POLATUZUMAB VEDOTIN
     Route: 041
     Dates: start: 20240406, end: 20240406
  4. POLATUZUMAB VEDOTIN [Suspect]
     Active Substance: POLATUZUMAB VEDOTIN
     Route: 041
     Dates: start: 20240429, end: 20240429
  5. METHOTREXATE [Suspect]
     Active Substance: METHOTREXATE
     Indication: Diffuse large B-cell lymphoma
     Route: 041
     Dates: start: 20240404, end: 20240404
  6. METHOTREXATE [Suspect]
     Active Substance: METHOTREXATE
     Route: 041
     Dates: start: 20240610, end: 20240610
  7. METHOTREXATE [Suspect]
     Active Substance: METHOTREXATE
     Dosage: 6 HOURS OF MAINTENANCE, FOLLOWED BY 12 HOURS OF?RESCUE AFTER THE END
     Route: 041
  8. CYCLOPHOSPHAMIDE [Suspect]
     Active Substance: CYCLOPHOSPHAMIDE
     Indication: Diffuse large B-cell lymphoma
     Route: 041
     Dates: start: 20240404, end: 20240404
  9. CYCLOPHOSPHAMIDE [Suspect]
     Active Substance: CYCLOPHOSPHAMIDE
     Route: 041
     Dates: start: 20240405, end: 20240405
  10. CYCLOPHOSPHAMIDE [Suspect]
     Active Substance: CYCLOPHOSPHAMIDE
     Route: 041
     Dates: start: 20240612, end: 20240612
  11. CYCLOPHOSPHAMIDE [Suspect]
     Active Substance: CYCLOPHOSPHAMIDE
     Route: 041
     Dates: start: 20240501, end: 20240501
  12. DOXORUBICIN [Suspect]
     Active Substance: DOXORUBICIN
     Indication: Diffuse large B-cell lymphoma
     Route: 041
     Dates: start: 20240404, end: 20240404
  13. DOXORUBICIN [Suspect]
     Active Substance: DOXORUBICIN
     Route: 041
     Dates: start: 20240405, end: 20240405
  14. DOXORUBICIN [Suspect]
     Active Substance: DOXORUBICIN
     Route: 041
     Dates: start: 20240612, end: 20240612
  15. VINCRISTINE [Suspect]
     Active Substance: VINCRISTINE
     Indication: Diffuse large B-cell lymphoma
     Route: 041
     Dates: start: 20240405, end: 20240405
  16. VINCRISTINE [Suspect]
     Active Substance: VINCRISTINE
     Route: 041
     Dates: start: 20240430, end: 20240430
  17. RITUXIMAB [Suspect]
     Active Substance: RITUXIMAB
     Indication: Diffuse large B-cell lymphoma
     Route: 041
     Dates: start: 20240407, end: 20240407
  18. RITUXIMAB [Suspect]
     Active Substance: RITUXIMAB
     Route: 041
     Dates: start: 20240611, end: 20240611
  19. RITUXIMAB [Suspect]
     Active Substance: RITUXIMAB
     Route: 041
     Dates: start: 20240430, end: 20240430
  20. ZANUBRUTINIB [Suspect]
     Active Substance: ZANUBRUTINIB
     Indication: Diffuse large B-cell lymphoma
     Route: 048
     Dates: start: 20240407, end: 20240411
  21. ZANUBRUTINIB [Suspect]
     Active Substance: ZANUBRUTINIB
     Route: 048
     Dates: start: 20240609, end: 20240609
  22. ZANUBRUTINIB [Suspect]
     Active Substance: ZANUBRUTINIB
     Route: 048
     Dates: start: 20240429, end: 20240520
  23. DOXORUBICIN HYDROCHLORIDE [Suspect]
     Active Substance: DOXORUBICIN HYDROCHLORIDE
     Indication: Diffuse large B-cell lymphoma
     Route: 041
     Dates: start: 20240404, end: 20240405
  24. DOXORUBICIN HYDROCHLORIDE [Suspect]
     Active Substance: DOXORUBICIN HYDROCHLORIDE
     Route: 041
     Dates: start: 20240501, end: 20240502
  25. METHYLPREDNISOLONE [Suspect]
     Active Substance: METHYLPREDNISOLONE
     Indication: Diffuse large B-cell lymphoma
     Route: 041
     Dates: start: 20240404, end: 20240408
  26. METHYLPREDNISOLONE SODIUM SUCCINATE [Suspect]
     Active Substance: METHYLPREDNISOLONE SODIUM SUCCINATE
     Indication: Diffuse large B-cell lymphoma
     Route: 041
     Dates: start: 20240610, end: 20240614
  27. METHYLPREDNISOLONE SODIUM SUCCINATE [Suspect]
     Active Substance: METHYLPREDNISOLONE SODIUM SUCCINATE
     Route: 041
     Dates: start: 20240430, end: 20240504
  28. DOXORUBICIN HYDROCHLORIDE [Suspect]
     Active Substance: DOXORUBICIN HYDROCHLORIDE
     Indication: Diffuse large B-cell lymphoma
  29. ENTECAVIR [Concomitant]
     Active Substance: ENTECAVIR
  30. ROXADUSTAT [Concomitant]
     Active Substance: ROXADUSTAT
  31. SODIUM BICARBONATE INJECTION 5% [Concomitant]
  32. LEUCOVORIN CALCIUM [Concomitant]
     Active Substance: LEUCOVORIN CALCIUM
  33. POLYETHYLENE GLYCOL RECOMBINANT HUMAN GRANULOCYTE COLONY STIMULATING F [Concomitant]
  34. OMEPRAZOLE ENTERIC COATED CAPSULES [Concomitant]
  35. PROMETHAZINE [Concomitant]
     Active Substance: PROMETHAZINE HYDROCHLORIDE
  36. POTASSIUM CHLORIDE INJECTION 10% [Concomitant]
  37. DEXAMETHASONE SODIUM PHOSPHATE [Concomitant]
     Active Substance: DEXAMETHASONE SODIUM PHOSPHATE
  38. COMPOUND PARACETAMOL TABLETS [Concomitant]
  39. VITAMIN B6 [Concomitant]
     Active Substance: PYRIDOXINE HYDROCHLORIDE
  40. LACTATED RINGERS SOLUTION [Concomitant]
     Active Substance: CALCIUM CHLORIDE\POTASSIUM CHLORIDE\SODIUM CHLORIDE\SODIUM LACTATE
  41. ACETYLCYSTEINE [Concomitant]
     Active Substance: ACETYLCYSTEINE
  42. POTASSIUM CHLORIDE SUSTAINED RELEASE TABLETS [Concomitant]
  43. PALONOSETRON HYDROCHLORIDE CAPSULES [Concomitant]
  44. SULFAMETHOXAZOLE [Concomitant]
     Active Substance: SULFAMETHOXAZOLE
  45. METOCLOPRAMIDE HYDROCHLORIDE [Concomitant]
     Active Substance: METOCLOPRAMIDE HYDROCHLORIDE
  46. FLUCONAZOLE [Concomitant]
     Active Substance: FLUCONAZOLE

REACTIONS (2)
  - Alanine aminotransferase increased [Recovered/Resolved]
  - Hypokalaemia [Recovered/Resolved]

NARRATIVE: CASE EVENT DATE: 20240612
